FAERS Safety Report 17665292 (Version 1)
Quarter: 2020Q2

REPORT INFORMATION
  Report Type: Spontaneous
  Country: US (occurrence: US)
  Receive Date: 20200411
  Receipt Date: 20200411
  Transmission Date: 20200713
  Serious: Yes (Disabling)
  Sender: FDA-Public Use
  Company Number: None

PATIENT

DRUGS (1)
  1. THC VAPE PENS [Suspect]
     Active Substance: .DELTA.8-TETRAHYDROCANNABINOL\DEVICE\HERBALS

REACTIONS (3)
  - Respiratory disorder [None]
  - Malaise [None]
  - Product counterfeit [None]

NARRATIVE: CASE EVENT DATE: 20200301
